FAERS Safety Report 24811410 (Version 2)
Quarter: 2025Q1

REPORT INFORMATION
  Report Type: Spontaneous
  Country: DE (occurrence: DE)
  Receive Date: 20250106
  Receipt Date: 20250114
  Transmission Date: 20250409
  Serious: Yes (Other)
  Sender: GLAXOSMITHKLINE
  Company Number: DE-GSKCCFEMEA-Case-02055692_AE-87230

PATIENT

DRUGS (6)
  1. NUCALA [Suspect]
     Active Substance: MEPOLIZUMAB
     Indication: Vasculitis
     Dosage: 100 MG, MO 3X100MG
     Route: 058
     Dates: start: 20240822
  2. NUCALA [Suspect]
     Active Substance: MEPOLIZUMAB
     Dosage: 100 MG,3 ? 100 MG
     Dates: start: 20241001
  3. NUCALA [Suspect]
     Active Substance: MEPOLIZUMAB
     Dosage: 100 UNK,3 ? 100 MG
     Dates: start: 20241124
  4. NUCALA [Suspect]
     Active Substance: MEPOLIZUMAB
  5. PREDNISOLONE [Concomitant]
     Active Substance: PREDNISOLONE
     Indication: Product used for unknown indication
     Dosage: 20 MG, QD
  6. PREDNISOLONE [Concomitant]
     Active Substance: PREDNISOLONE
     Dosage: 10 MG, QD,3.27 10 MG PER

REACTIONS (11)
  - Diverticulitis intestinal perforated [Unknown]
  - Hyperthyroidism [Unknown]
  - Colonic abscess [Unknown]
  - Renal impairment [Unknown]
  - Neuropathy peripheral [Unknown]
  - Condition aggravated [Unknown]
  - Allergic sinusitis [Unknown]
  - COVID-19 [Unknown]
  - Osteoarthritis [Unknown]
  - Drug ineffective [Unknown]
  - Product use in unapproved indication [Unknown]
